FAERS Safety Report 12216920 (Version 1)
Quarter: 2016Q1

REPORT INFORMATION
  Report Type: Spontaneous
  Country: US (occurrence: US)
  Receive Date: 20160329
  Receipt Date: 20160329
  Transmission Date: 20160526
  Serious: Yes (Hospitalization, Other)
  Sender: FDA-Public Use
  Company Number: US-PFIZER INC-2016127759

PATIENT
  Age: 74 Year
  Sex: Male
  Weight: 52.61 kg

DRUGS (1)
  1. SUTENT [Suspect]
     Active Substance: SUNITINIB MALATE
     Indication: GASTROINTESTINAL STROMAL TUMOUR
     Dosage: 50 MG, CYCLIC ( 4 WEEKS OFF 2 WEEKS)
     Route: 048
     Dates: start: 20141213, end: 20160226

REACTIONS (5)
  - Hypertension [Unknown]
  - Weight decreased [Unknown]
  - Gastrointestinal stromal tumour [Unknown]
  - Intestinal obstruction [Unknown]
  - Disease progression [Unknown]
